FAERS Safety Report 21726748 (Version 3)
Quarter: 2023Q1

REPORT INFORMATION
  Report Type: Spontaneous
  Country: AT (occurrence: AT)
  Receive Date: 20221214
  Receipt Date: 20230103
  Transmission Date: 20230418
  Serious: Yes (Other)
  Sender: FDA-Public Use
  Company Number: AT-Merz Pharmaceuticals GmbH-22-03094

PATIENT
  Age: 48 Year
  Sex: Male

DRUGS (3)
  1. IBUPROFEN [Suspect]
     Active Substance: IBUPROFEN
     Indication: Headache
     Dosage: 200 MG
     Route: 065
  2. IBUPROFEN [Suspect]
     Active Substance: IBUPROFEN
     Dosage: 1 DOSAGE FORM (1 DF)
     Route: 065
  3. ATORVASTATIN [Concomitant]
     Active Substance: ATORVASTATIN
     Indication: Product used for unknown indication
     Dosage: 20 MG
     Route: 065

REACTIONS (3)
  - Tunnel vision [Recovered/Resolved]
  - Altered state of consciousness [Recovered/Resolved]
  - White matter lesion [Unknown]
